FAERS Safety Report 10618666 (Version 2)
Quarter: 2015Q1

REPORT INFORMATION
  Report Type: Spontaneous
  Country: JP (occurrence: JP)
  Receive Date: 20141202
  Receipt Date: 20150112
  Transmission Date: 20150720
  Serious: Yes (Other)
  Sender: FDA-Public Use
  Company Number: PHJP2014JP001362

PATIENT
  Age: 5 Year
  Sex: Female

DRUGS (7)
  1. DIAPP [Suspect]
     Active Substance: DIAZEPAM
     Dosage: 1 DF, PRN
  2. DIAPP [Suspect]
     Active Substance: DIAZEPAM
     Indication: PRODUCT USED FOR UNKNOWN INDICATION
     Dosage: 1 DF, PRN
     Route: 054
     Dates: start: 20140423
  3. DIAPP [Suspect]
     Active Substance: DIAZEPAM
     Dosage: 1 DF, PRN
  4. DIAPP [Suspect]
     Active Substance: DIAZEPAM
     Dosage: 1 DF, PRN
  5. TEGRETOL [Suspect]
     Active Substance: CARBAMAZEPINE
     Indication: EPILEPSY
     Dosage: 0.1 G, QD
     Route: 048
     Dates: start: 20140423
  6. DIAPP [Suspect]
     Active Substance: DIAZEPAM
     Dosage: 1 DF, PRN
  7. DIAPP [Suspect]
     Active Substance: DIAZEPAM
     Dosage: 1 DF, PRN

REACTIONS (1)
  - Seizure [Recovered/Resolved]

NARRATIVE: CASE EVENT DATE: 20141127
